FAERS Safety Report 15080097 (Version 3)
Quarter: 2019Q2

REPORT INFORMATION
  Report Type: Report from Study
  Country: BR (occurrence: BR)
  Receive Date: 20180627
  Receipt Date: 20190416
  Transmission Date: 20190711
  Serious: Yes (Life-Threatening, Other)
  Sender: FDA-Public Use
  Company Number: PHHY2018BR031126

PATIENT
  Age: 83 Year
  Sex: Male
  Weight: 67 kg

DRUGS (4)
  1. ACLASTA [Suspect]
     Active Substance: ZOLEDRONIC ACID
     Indication: OSTEITIS DEFORMANS
     Dosage: 1 DF, Q12MO
     Route: 042
  2. ACLASTA [Suspect]
     Active Substance: ZOLEDRONIC ACID
     Indication: OSTEOPOROSIS
     Dosage: 1 DF, Q12MO
     Route: 042
     Dates: start: 20180615, end: 2018
  3. ACLASTA [Suspect]
     Active Substance: ZOLEDRONIC ACID
     Indication: DIABETES MELLITUS
  4. ACLASTA [Suspect]
     Active Substance: ZOLEDRONIC ACID
     Indication: PROSTATIC DISORDER

REACTIONS (15)
  - Eating disorder [Unknown]
  - Malaise [Recovered/Resolved]
  - Rheumatoid arthritis [Unknown]
  - Constipation [Unknown]
  - Feeling abnormal [Unknown]
  - Hypoacusis [Not Recovered/Not Resolved]
  - Arthralgia [Recovered/Resolved]
  - Mobility decreased [Unknown]
  - Headache [Recovered/Resolved]
  - Pain [Recovered/Resolved]
  - Pain [Unknown]
  - Nausea [Recovered/Resolved]
  - Weight decreased [Unknown]
  - Rheumatic disorder [Unknown]
  - Drug ineffective [Unknown]

NARRATIVE: CASE EVENT DATE: 20180615
